FAERS Safety Report 7589045-0 (Version None)
Quarter: 2011Q3

REPORT INFORMATION
  Report Type: 
  Country: None (occurrence: None)
  Receive Date: 20110705
  Receipt Date: 20110621
  Transmission Date: 20111222
  Serious: Yes (Hospitalization)
  Sender: FDA-Public Use
  Company Number: US-JNJFOC-20110611914

PATIENT
  Sex: Male
  Weight: 48.7 kg

DRUGS (10)
  1. REMICADE [Suspect]
     Indication: CROHN'S DISEASE
     Route: 042
  2. REMICADE [Suspect]
     Route: 042
     Dates: start: 20100823
  3. REMICADE [Suspect]
     Route: 042
     Dates: start: 20110516
  4. MESALAMINE [Concomitant]
     Indication: INFLAMMATORY BOWEL DISEASE
     Route: 048
  5. CALCIUM AND VITAMIN D [Concomitant]
  6. ALBUTEROL SULFATE AUTOHALER [Concomitant]
  7. LORAZEPAM [Concomitant]
  8. REMICADE [Suspect]
     Route: 042
     Dates: start: 20110528
  9. PRILOSEC [Concomitant]
  10. ANTIBIOTICS [Concomitant]
     Indication: INFLAMMATORY BOWEL DISEASE

REACTIONS (1)
  - CROHN'S DISEASE [None]
